FAERS Safety Report 25632794 (Version 1)
Quarter: 2025Q3

REPORT INFORMATION
  Report Type: Spontaneous
  Country: US (occurrence: US)
  Receive Date: 20250801
  Receipt Date: 20250801
  Transmission Date: 20251021
  Serious: No
  Sender: GRIFOLS
  Company Number: US-IGSA-BIG0033050

PATIENT
  Sex: Female

DRUGS (24)
  1. GAMUNEX-C [Suspect]
     Active Substance: HUMAN IMMUNOGLOBULIN G
     Indication: Multiple sclerosis
  2. GAMUNEX-C [Suspect]
     Active Substance: HUMAN IMMUNOGLOBULIN G
     Indication: Off label use
  3. ASPIRIN [Concomitant]
     Active Substance: ASPIRIN
  4. ESCITALOPRAM [Concomitant]
     Active Substance: ESCITALOPRAM OXALATE
  5. FISH OIL [Concomitant]
     Active Substance: FISH OIL
  6. LEVOCETIRIZINE DIHYDROCHLORIDE [Concomitant]
     Active Substance: LEVOCETIRIZINE DIHYDROCHLORIDE
  7. MAGNESIUM [Concomitant]
     Active Substance: MAGNESIUM
  8. NORTRIPTYLINE [Concomitant]
     Active Substance: NORTRIPTYLINE
  9. POTASSIUM [Concomitant]
     Active Substance: POTASSIUM
  10. SUMATRIPTAN [Concomitant]
     Active Substance: SUMATRIPTAN
  11. TRELEGY ELLIPTA [Concomitant]
     Active Substance: FLUTICASONE FUROATE\UMECLIDINIUM BROMIDE\VILANTEROL TRIFENATATE
  12. VITAMIN B COMPLEX [Concomitant]
     Active Substance: CYANOCOBALAMIN\DEXPANTHENOL\NIACINAMIDE\PYRIDOXINE HYDROCHLORIDE\RIBOFLAVIN 5^-PHOSPHATE SODIUM\THIA
  13. BACLOFEN [Concomitant]
     Active Substance: BACLOFEN
  14. BACLOFEN [Concomitant]
     Active Substance: BACLOFEN
  15. KETOCONAZOLE [Concomitant]
     Active Substance: KETOCONAZOLE
  16. BUPROPION HCL SANDOZ RETARD [Concomitant]
  17. CICLOPIROX [Concomitant]
     Active Substance: CICLOPIROX
  18. LEVOTHYROXINE [Concomitant]
     Active Substance: LEVOTHYROXINE
  19. LEVOTHYROXINE SODIUM [Concomitant]
     Active Substance: LEVOTHYROXINE SODIUM
  20. AMOXICILLIN [Concomitant]
     Active Substance: AMOXICILLIN
  21. ALPRAZOLAM [Concomitant]
     Active Substance: ALPRAZOLAM
  22. METHYLPHENIDATE HYDROCHLORIDE [Concomitant]
     Active Substance: METHYLPHENIDATE HYDROCHLORIDE
  23. HYDROCODONE [Concomitant]
     Active Substance: HYDROCODONE
  24. PREDNISONE [Concomitant]
     Active Substance: PREDNISONE

REACTIONS (1)
  - Nasopharyngitis [Not Recovered/Not Resolved]
